FAERS Safety Report 19006247 (Version 1)
Quarter: 2021Q1

REPORT INFORMATION
  Report Type: Report from Study
  Country: None (occurrence: US)
  Receive Date: 20210315
  Receipt Date: 20210315
  Transmission Date: 20210420
  Serious: Yes (Hospitalization)
  Sender: FDA-Public Use
  Company Number: US-ABBVIE-21K-163-3809254-00

PATIENT
  Sex: Female

DRUGS (2)
  1. HUMIRA [Suspect]
     Active Substance: ADALIMUMAB
     Indication: RHEUMATOID ARTHRITIS
  2. HUMIRA [Suspect]
     Active Substance: ADALIMUMAB
     Indication: PSORIATIC ARTHROPATHY
     Dosage: CITRATE FREE
     Route: 058

REACTIONS (5)
  - Anaemia [Recovering/Resolving]
  - Loss of consciousness [Unknown]
  - Syncope [Recovering/Resolving]
  - Tendonitis [Not Recovered/Not Resolved]
  - Urinary tract infection [Recovering/Resolving]
